FAERS Safety Report 6980841-7 (Version None)
Quarter: 2010Q3

REPORT INFORMATION
  Report Type: 
  Country: None (occurrence: None)
  Receive Date: 20100914
  Receipt Date: 20100901
  Transmission Date: 20110219
  Serious: Yes (Other)
  Sender: FDA-Public Use
  Company Number: FR-ELI_LILLY_AND_COMPANY-FR201009000147

PATIENT
  Sex: Female

DRUGS (4)
  1. GEMZAR [Suspect]
     Indication: NEURILEMMOMA MALIGNANT
  2. SOLU-MEDROL [Concomitant]
     Dosage: 60 MG, UNK
     Dates: start: 20081002, end: 20090610
  3. INIPOMP [Concomitant]
     Dates: start: 20081002, end: 20090610
  4. ZOFRAN [Concomitant]
     Dosage: UNK, ON DAY 8 AND 15
     Dates: start: 20081002, end: 20090610

REACTIONS (7)
  - BALANCE DISORDER [None]
  - BURNING SENSATION [None]
  - DEAFNESS UNILATERAL [None]
  - DIZZINESS [None]
  - METASTASES TO MENINGES [None]
  - OFF LABEL USE [None]
  - VIITH NERVE PARALYSIS [None]
